FAERS Safety Report 4540396-3 (Version None)
Quarter: 2004Q4

REPORT INFORMATION
  Report Type: 
  Country: None (occurrence: None)
  Receive Date: 20041228
  Receipt Date: 20041221
  Transmission Date: 20050328
  Serious: Yes (Other)
  Sender: FDA-Public Use
  Company Number: 003797

PATIENT
  Sex: Female

DRUGS (5)
  1. MEDROXYPROGESTERONE ACETATE [Suspect]
  2. CENESTIN [Suspect]
  3. ESTRADIOL [Suspect]
  4. ESTROPIPATE [Suspect]
  5. ESTROGENS ESTERIFIED(ESTROGENS ESTERIFIED) [Suspect]

REACTIONS (1)
  - BREAST CANCER [None]
